FAERS Safety Report 20537921 (Version 1)
Quarter: 2022Q1

REPORT INFORMATION
  Report Type: Spontaneous
  Country: US (occurrence: None)
  Receive Date: 20220301
  Receipt Date: 20220301
  Transmission Date: 20220424
  Serious: Yes (Hospitalization)
  Sender: FDA-Public Use
  Company Number: None

PATIENT
  Age: 20 Year
  Sex: Male
  Weight: 89 kg

DRUGS (1)
  1. VRAYLAR [Suspect]
     Active Substance: CARIPRAZINE
     Dosage: FREQUENCY : DAILY;?

REACTIONS (2)
  - Agitation [None]
  - Condition aggravated [None]

NARRATIVE: CASE EVENT DATE: 20220222
